FAERS Safety Report 6591301-X (Version None)
Quarter: 2010Q1

REPORT INFORMATION
  Report Type: 
  Country: None (occurrence: None)
  Receive Date: 20100219
  Receipt Date: 20100209
  Transmission Date: 20100710
  Serious: Yes (Hospitalization, Other)
  Sender: FDA-Public Use
  Company Number: US-PFIZER INC-2010018044

PATIENT
  Sex: Female
  Weight: 65.76 kg

DRUGS (4)
  1. HALCION [Suspect]
     Indication: INSOMNIA
  2. VALIUM [Concomitant]
     Dosage: UNK
  3. LASIX [Concomitant]
     Dosage: AS NEEDED
  4. POTASSIUM [Concomitant]

REACTIONS (4)
  - DRUG EFFECT DECREASED [None]
  - HIP ARTHROPLASTY [None]
  - OSTEOARTHRITIS [None]
  - WEIGHT DECREASED [None]
